FAERS Safety Report 5839774-1 (Version None)
Quarter: 2008Q3

REPORT INFORMATION
  Report Type: 
  Country: None (occurrence: None)
  Receive Date: 20080811
  Receipt Date: 20080804
  Transmission Date: 20090109
  Serious: Yes (Other)
  Sender: FDA-Public Use
  Company Number: JP-AVENTIS-200811245JP

PATIENT
  Age: 6 Month
  Sex: Male
  Weight: 7 kg

DRUGS (4)
  1. LASIX [Suspect]
     Indication: OEDEMA
     Route: 048
     Dates: start: 20080330, end: 20080407
  2. ALESION [Suspect]
     Route: 048
     Dates: start: 20080404, end: 20080407
  3. FROBEN [Concomitant]
     Route: 048
     Dates: start: 20080330, end: 20080407
  4. ZADITEN                            /00495201/ [Concomitant]

REACTIONS (7)
  - ALANINE AMINOTRANSFERASE INCREASED [None]
  - ASPARTATE AMINOTRANSFERASE INCREASED [None]
  - CONDITION AGGRAVATED [None]
  - DERMATITIS ATOPIC [None]
  - EOSINOPHIL COUNT INCREASED [None]
  - HEPATIC FUNCTION ABNORMAL [None]
  - HEPATOCELLULAR INJURY [None]
